FAERS Safety Report 13841943 (Version 3)
Quarter: 2017Q4

REPORT INFORMATION
  Report Type: Report from Study
  Country: US (occurrence: US)
  Receive Date: 20170807
  Receipt Date: 20171103
  Transmission Date: 20180320
  Serious: Yes (Other)
  Sender: FDA-Public Use
  Company Number: US-AMGEN-USASL2017090243

PATIENT
  Age: 59 Year
  Sex: Female

DRUGS (1)
  1. NPLATE [Suspect]
     Active Substance: ROMIPLOSTIM
     Indication: IMMUNE THROMBOCYTOPENIC PURPURA
     Dosage: EVERY 2 TO 3 WEEKS
     Route: 065
     Dates: end: 201707

REACTIONS (8)
  - Headache [Unknown]
  - Off label use [Unknown]
  - Nausea [Unknown]
  - Vomiting [Recovered/Resolved]
  - Malaise [Unknown]
  - Abdominal pain upper [Recovered/Resolved]
  - Adverse reaction [Unknown]
  - Platelet count abnormal [Unknown]

NARRATIVE: CASE EVENT DATE: 201706
